FAERS Safety Report 7068006-4 (Version None)
Quarter: 2010Q4

REPORT INFORMATION
  Report Type: 
  Country: None (occurrence: None)
  Receive Date: 20101028
  Receipt Date: 20100928
  Transmission Date: 20110411
  Serious: No
  Sender: FDA-Public Use
  Company Number: US-MYLANLABS-2010S1017958

PATIENT
  Age: 63 Year
  Sex: Male

DRUGS (1)
  1. TAMSULOSIN HCL [Suspect]
     Indication: BENIGN PROSTATIC HYPERPLASIA
     Route: 048
     Dates: start: 20100622, end: 20100726

REACTIONS (4)
  - DRUG EFFECT DECREASED [None]
  - POLLAKIURIA [None]
  - URINARY INCONTINENCE [None]
  - URINE FLOW DECREASED [None]
